FAERS Safety Report 26031434 (Version 3)
Quarter: 2025Q4

REPORT INFORMATION
  Report Type: Spontaneous
  Country: JP (occurrence: JP)
  Receive Date: 20251112
  Receipt Date: 20251224
  Transmission Date: 20260117
  Serious: Yes (Hospitalization)
  Sender: GALDERMA
  Company Number: JP-GALDERMA-JP2025022938

PATIENT

DRUGS (5)
  1. NEMOLIZUMAB [Suspect]
     Active Substance: NEMOLIZUMAB
     Indication: Neurodermatitis
     Dosage: 60 MILLIGRAMS/4 WEEKS
     Route: 058
     Dates: start: 20250623, end: 20250623
  2. NEMOLIZUMAB [Suspect]
     Active Substance: NEMOLIZUMAB
     Dosage: 30 MILLIGRAMS/4 WEEKS
     Route: 058
     Dates: start: 20250722, end: 20250722
  3. NEMOLIZUMAB [Suspect]
     Active Substance: NEMOLIZUMAB
     Dosage: 30 MILLIGRAMS/4 WEEKS
     Route: 058
     Dates: start: 20250820, end: 20250820
  4. NEMOLIZUMAB [Suspect]
     Active Substance: NEMOLIZUMAB
     Dosage: 30 MILLIGRAMS/4 WEEKS
     Route: 058
     Dates: start: 20250917, end: 20250917
  5. CLOBETASOL [Concomitant]
     Active Substance: CLOBETASOL
     Indication: Neurodermatitis
     Dosage: UNK
     Route: 061

REACTIONS (1)
  - Erythema [Recovered/Resolved]

NARRATIVE: CASE EVENT DATE: 20251007
